FAERS Safety Report 7207408-X (Version None)
Quarter: 2010Q4

REPORT INFORMATION
  Report Type: 
  Country: None (occurrence: None)
  Receive Date: 20101221
  Receipt Date: 20101209
  Transmission Date: 20110411
  Serious: Yes (Other)
  Sender: FDA-Public Use
  Company Number: DSA_44019_2010

PATIENT
  Sex: Female

DRUGS (1)
  1. BUPROPION HYDROCHLORIDE (WELBUTRIN XR-BUPROPION HYDROCHLORIDE) [Suspect]
     Indication: AFFECTIVE DISORDER
     Dosage: 150 MG DAILY;

REACTIONS (7)
  - APHASIA [None]
  - DYSPHEMIA [None]
  - HYPERSENSITIVITY [None]
  - OVERDOSE [None]
  - PALPITATIONS [None]
  - PARALYSIS [None]
  - POISONING [None]
